FAERS Safety Report 23168182 (Version 4)
Quarter: 2023Q4

REPORT INFORMATION
  Report Type: Report from Study
  Country: ES (occurrence: ES)
  Receive Date: 20231109
  Receipt Date: 20231129
  Transmission Date: 20240110
  Serious: Yes (Hospitalization)
  Sender: FDA-Public Use
  Company Number: ES-ABBVIE-5487891

PATIENT
  Sex: Female

DRUGS (2)
  1. CARBIDOPA\LEVODOPA [Suspect]
     Active Substance: CARBIDOPA\LEVODOPA
     Indication: Parkinson^s disease
     Dosage: CONTINUOUS DOSE IS 8.5
     Route: 050
     Dates: start: 20171107, end: 202311
  2. CARBIDOPA\LEVODOPA [Suspect]
     Active Substance: CARBIDOPA\LEVODOPA
     Dosage: CORRECT DOSES UPDATED, DOSES CHANGED TO 3.1ML/H
     Route: 050
     Dates: start: 202311

REACTIONS (9)
  - Urinary tract infection [Not Recovered/Not Resolved]
  - Rash macular [Not Recovered/Not Resolved]
  - Aggression [Recovering/Resolving]
  - Hallucination [Unknown]
  - Delusion [Unknown]
  - Urticaria [Unknown]
  - Device alarm issue [Unknown]
  - Device alarm issue [Unknown]
  - Incorrect dose administered [Recovered/Resolved]

NARRATIVE: CASE EVENT DATE: 20230101
